FAERS Safety Report 6271433-6 (Version None)
Quarter: 2009Q3

REPORT INFORMATION
  Report Type: 
  Country: None (occurrence: None)
  Receive Date: 20090717
  Receipt Date: 20090708
  Transmission Date: 20100115
  Serious: Yes (Hospitalization, Other)
  Sender: FDA-Public Use
  Company Number: NSADSS2001005573

PATIENT
  Sex: Male

DRUGS (8)
  1. REMICADE [Suspect]
     Route: 041
     Dates: start: 19991112
  2. REMICADE [Suspect]
     Route: 041
     Dates: start: 19991112
  3. REMICADE [Suspect]
     Route: 041
     Dates: start: 19991112
  4. REMICADE [Suspect]
     Route: 041
     Dates: start: 19991112
  5. REMICADE [Suspect]
     Indication: RHEUMATOID ARTHRITIS
     Route: 041
     Dates: start: 19991112
  6. METHOTREXATE [Concomitant]
     Indication: DRUG USE FOR UNKNOWN INDICATION
     Route: 065
  7. PREDNISOLONE [Concomitant]
     Indication: DRUG USE FOR UNKNOWN INDICATION
     Route: 065
  8. VIOXX [Concomitant]
     Indication: DRUG USE FOR UNKNOWN INDICATION
     Route: 065

REACTIONS (6)
  - CHEST PAIN [None]
  - OSTEOARTHRITIS [None]
  - PNEUMONIA [None]
  - PULMONARY EMBOLISM [None]
  - PYREXIA [None]
  - VASCULITIS [None]
